FAERS Safety Report 13531648 (Version 1)
Quarter: 2017Q2

REPORT INFORMATION
  Report Type: Spontaneous
  Country: US (occurrence: US)
  Receive Date: 20170510
  Receipt Date: 20170510
  Transmission Date: 20170830
  Serious: No
  Sender: FDA-Public Use
  Company Number: None

PATIENT
  Age: 39 Year
  Sex: Female
  Weight: 63 kg

DRUGS (4)
  1. ZOFRAN [Concomitant]
     Active Substance: ONDANSETRON HYDROCHLORIDE
  2. SCOPOLAMINE [Suspect]
     Active Substance: SCOPOLAMINE
     Indication: MOTION SICKNESS
     Route: 062
     Dates: start: 20170217, end: 20170221
  3. ALBUTEROL. [Concomitant]
     Active Substance: ALBUTEROL
  4. FLOVENT [Concomitant]
     Active Substance: FLUTICASONE PROPIONATE

REACTIONS (10)
  - Lethargy [None]
  - Abasia [None]
  - Dyspnoea [None]
  - Tremor [None]
  - Malaise [None]
  - Nausea [None]
  - Movement disorder [None]
  - Withdrawal syndrome [None]
  - Decreased appetite [None]
  - Photophobia [None]

NARRATIVE: CASE EVENT DATE: 20170226
